FAERS Safety Report 16001084 (Version 1)
Quarter: 2019Q1

REPORT INFORMATION
  Report Type: Spontaneous
  Country: CN (occurrence: CN)
  Receive Date: 20190225
  Receipt Date: 20190225
  Transmission Date: 20190418
  Serious: Yes (Other)
  Sender: FDA-Public Use
  Company Number: CN-PFIZER INC-2019075916

PATIENT
  Age: 7 Year
  Sex: Female
  Weight: 27 kg

DRUGS (8)
  1. LAN SU [Concomitant]
     Indication: PNEUMONIA
     Dosage: 15 MG, 1X/DAY
     Route: 041
     Dates: start: 20190209, end: 20190218
  2. GLUCOSE [Concomitant]
     Active Substance: DEXTROSE
     Indication: VEHICLE SOLUTION USE
     Dosage: 250 ML, 1X/DAY
     Route: 041
     Dates: start: 20190209, end: 20190214
  3. AZITHROMYCIN ANHYDROUS. [Concomitant]
     Active Substance: AZITHROMYCIN ANHYDROUS
     Dosage: 0.25 G, 1X/DAY
     Route: 041
     Dates: start: 20190209, end: 20190214
  4. METHYLPREDNISOLONE SODIUM SUCCINATE. [Suspect]
     Active Substance: METHYLPREDNISOLONE SODIUM SUCCINATE
     Indication: PNEUMONIA
     Dosage: 30 MG, 1X/DAY
     Route: 041
     Dates: start: 20190212, end: 20190212
  5. GLUCOSE + SODIUM CHLORIDE [Concomitant]
     Indication: VEHICLE SOLUTION USE
     Dosage: 100 ML, 1X/DAY
     Route: 041
     Dates: start: 20190209, end: 20190218
  6. CEFTRIAXONE SODIUM. [Concomitant]
     Active Substance: CEFTRIAXONE SODIUM
     Indication: PNEUMONIA
     Dosage: 1.6 G, 1X/DAY
     Route: 041
     Dates: start: 20190209, end: 20190218
  7. GLUCOSE + SODIUM CHLORIDE [Concomitant]
     Indication: VEHICLE SOLUTION USE
     Dosage: 50 ML, 1X/DAY
     Route: 041
     Dates: start: 20190209, end: 20190218
  8. AZITHROMYCIN ANHYDROUS. [Concomitant]
     Active Substance: AZITHROMYCIN ANHYDROUS
     Indication: PNEUMONIA
     Dosage: 0.25 G, 1X/DAY
     Route: 041
     Dates: start: 20190209, end: 20190214

REACTIONS (4)
  - Rash [Recovering/Resolving]
  - Body temperature fluctuation [Unknown]
  - Pruritus [Recovering/Resolving]
  - Macule [Recovering/Resolving]

NARRATIVE: CASE EVENT DATE: 20190212
